FAERS Safety Report 16435053 (Version 2)
Quarter: 2019Q3

REPORT INFORMATION
  Report Type: Spontaneous
  Country: US (occurrence: US)
  Receive Date: 20190614
  Receipt Date: 20190730
  Transmission Date: 20191004
  Serious: No
  Sender: FDA-Public Use
  Company Number: US-JNJFOC-20190610245

PATIENT
  Age: 74 Year
  Sex: Male
  Weight: 94.35 kg

DRUGS (10)
  1. TAMSULOSIN [Concomitant]
     Active Substance: TAMSULOSIN
     Route: 065
  2. DEXAMETHASONE. [Concomitant]
     Active Substance: DEXAMETHASONE
     Route: 065
  3. BICALUTAMIDE. [Concomitant]
     Active Substance: BICALUTAMIDE
     Route: 065
  4. EZETIMIBE. [Concomitant]
     Active Substance: EZETIMIBE
     Route: 065
  5. ASPIRIN. [Concomitant]
     Active Substance: ASPIRIN
  6. ZYTIGA [Suspect]
     Active Substance: ABIRATERONE ACETATE
     Indication: PROSTATE CANCER
     Route: 048
  7. ZOFRAN [Concomitant]
     Active Substance: ONDANSETRON HYDROCHLORIDE
     Route: 065
  8. ZYTIGA [Suspect]
     Active Substance: ABIRATERONE ACETATE
     Dosage: 250MG
     Route: 048
     Dates: start: 20190605
  9. LISINOPRIL. [Concomitant]
     Active Substance: LISINOPRIL
     Route: 065
  10. VITAMIN D                          /00107901/ [Concomitant]
     Active Substance: ERGOCALCIFEROL

REACTIONS (4)
  - Oedema peripheral [Unknown]
  - Fatigue [Unknown]
  - Dizziness [Unknown]
  - Vision blurred [Unknown]

NARRATIVE: CASE EVENT DATE: 20190606
